FAERS Safety Report 25042880 (Version 2)
Quarter: 2025Q2

REPORT INFORMATION
  Report Type: Spontaneous
  Country: FR (occurrence: FR)
  Receive Date: 20250305
  Receipt Date: 20250401
  Transmission Date: 20250717
  Serious: Yes (Other)
  Sender: VERTEX
  Company Number: None

PATIENT
  Age: 28 Month
  Sex: Female
  Weight: 12 kg

DRUGS (1)
  1. ELEXACAFTOR\IVACAFTOR\TEZACAFTOR [Suspect]
     Active Substance: ELEXACAFTOR\IVACAFTOR\TEZACAFTOR
     Indication: Cystic fibrosis
     Dosage: 60 MG IVA/ 40 MG TEZA/ 80 MG ELEXA; ONE SACHET EVERY DAY
     Route: 048
     Dates: start: 20241207

REACTIONS (4)
  - Middle insomnia [Unknown]
  - Poor quality sleep [Unknown]
  - Akathisia [Unknown]
  - Anger [Unknown]

NARRATIVE: CASE EVENT DATE: 20241201
